FAERS Safety Report 25870272 (Version 1)
Quarter: 2025Q4

REPORT INFORMATION
  Report Type: Spontaneous
  Country: US (occurrence: US)
  Receive Date: 20251001
  Receipt Date: 20251001
  Transmission Date: 20260117
  Serious: Yes (Other)
  Sender: ABBVIE
  Company Number: US-ABBVIE-6482198

PATIENT
  Sex: Male

DRUGS (1)
  1. REFRESH TEARS [Suspect]
     Active Substance: CARBOXYMETHYLCELLULOSE SODIUM
     Indication: Product used for unknown indication
     Dosage: ROA- OPHTHALMIC
     Route: 065

REACTIONS (3)
  - Cerebrovascular accident [Unknown]
  - Device difficult to use [Not Recovered/Not Resolved]
  - Thrombosis [Unknown]
